FAERS Safety Report 15789536 (Version 2)
Quarter: 2019Q1

REPORT INFORMATION
  Report Type: Spontaneous
  Country: JP (occurrence: JP)
  Receive Date: 20190104
  Receipt Date: 20190226
  Transmission Date: 20190417
  Serious: Yes (Hospitalization)
  Sender: FDA-Public Use
  Company Number: JP-SAKK-2018SA396473AA

PATIENT
  Age: 69 Year
  Sex: Female
  Weight: 54 kg

DRUGS (3)
  1. MOZOBIL [Suspect]
     Active Substance: PLERIXAFOR
     Indication: PERIPHERAL BLOOD STEM CELL APHERESIS
     Dosage: 13 MG, 1X
     Route: 058
     Dates: start: 20181112, end: 20181112
  2. LEVOFLOXACIN. [Concomitant]
     Active Substance: LEVOFLOXACIN
     Indication: INFECTION PROPHYLAXIS
     Dosage: 500 MG, QD
     Route: 048
     Dates: start: 20181107, end: 20181117
  3. FILGRASTIM BS [FILGRASTIM BIOSIMILAR 1] [Concomitant]
     Indication: PERIPHERAL BLOOD STEM CELL APHERESIS
     Dosage: 300 UG, BID
     Route: 058
     Dates: start: 20181107, end: 20181113

REACTIONS (5)
  - Abdominal pain [Recovered/Resolved]
  - Proctalgia [Recovered/Resolved]
  - Abdominal distension [Recovered/Resolved]
  - Urinary retention [Recovered/Resolved]
  - Constipation [Recovered/Resolved]

NARRATIVE: CASE EVENT DATE: 20181112
